FAERS Safety Report 21091106 (Version 3)
Quarter: 2022Q3

REPORT INFORMATION
  Report Type: Report from Study
  Country: MX (occurrence: MX)
  Receive Date: 20220716
  Receipt Date: 20220730
  Transmission Date: 20221027
  Serious: Yes (Death, Hospitalization, Other)
  Sender: FDA-Public Use
  Company Number: MX-NOVARTISPH-NVSC2022MX161637

PATIENT
  Age: 55 Year
  Sex: Male
  Weight: 72 kg

DRUGS (8)
  1. ENTRESTO [Suspect]
     Active Substance: SACUBITRIL\VALSARTAN
     Indication: Cardiac failure
     Dosage: 1 DOSAGE FORM, QD
     Route: 048
     Dates: start: 202206
  2. ENTRESTO [Suspect]
     Active Substance: SACUBITRIL\VALSARTAN
     Dosage: 1 DOSAGE FORM, Q12H
     Route: 048
     Dates: start: 202206, end: 20220617
  3. METFORMIN [Concomitant]
     Active Substance: METFORMIN HYDROCHLORIDE
     Indication: Diabetes mellitus
     Dosage: 1 DOSAGE FORM, QD, (EVERY 24 HOURS, 15 YEARS AGO)
     Route: 048
     Dates: end: 20220617
  4. ISOSORBIDE [Concomitant]
     Active Substance: ISOSORBIDE
     Indication: Coagulation time shortened
     Dosage: 1 DOSAGE FORM, Q12H, (10 YEARS AGO)
     Route: 048
     Dates: end: 20220617
  5. FUROSEMIDE [Concomitant]
     Active Substance: FUROSEMIDE
     Indication: Polyuria
     Dosage: 1 DOSAGE FORM, QD, (EVERY 24 HOURS, 4 YEARS AGO)
     Route: 048
     Dates: end: 20220617
  6. AMIODARONE [Concomitant]
     Active Substance: AMIODARONE
     Indication: Arrhythmia
     Dosage: 1 DOSAGE FORM, QD, (EVERY 24 HOURS, 5 YEARS AGO)
     Route: 048
     Dates: end: 20220617
  7. DIGOXIN [Concomitant]
     Active Substance: DIGOXIN
     Indication: Arrhythmia
     Dosage: 1 DOSAGE FORM, (FROM MONDAY TO FRIDAY, 1 YEAR AGO)
     Route: 048
     Dates: end: 20220617
  8. MICCIL [Concomitant]
     Indication: Polyuria
     Dosage: 1 DOSAGE FORM, QD, (EVERY 24 HOURS, 4 YEARS AGO)
     Route: 048
     Dates: end: 20220617

REACTIONS (3)
  - Cardiac hypertrophy [Fatal]
  - Cardiac failure [Fatal]
  - Off label use [Unknown]

NARRATIVE: CASE EVENT DATE: 20220601
